FAERS Safety Report 4607979-3 (Version None)
Quarter: 2005Q2

REPORT INFORMATION
  Report Type: 
  Country: None (occurrence: None)
  Receive Date: 20050303
  Receipt Date: 20041029
  Transmission Date: 20051028
  Serious: No
  Sender: FDA-Public Use
  Company Number: 210080

PATIENT
  Age: 49 Year
  Sex: Female

DRUGS (14)
  1. XOLAIR [Suspect]
     Indication: ASTHMA
     Dosage: 300 MG, 1/MONTH, SUBCUTANEOUS
     Route: 058
     Dates: start: 20041021
  2. THEO-DUR [Concomitant]
  3. CORTICOSTEROID NOS (CORTICOSTEROID) [Concomitant]
  4. ADVAIR (FLUTICASONE PROPIONATE, SALMETEROL XINAFOATE) [Concomitant]
  5. ALBUTEROL INHALER (ALBUTEROL SULFATE, ALBUTEROL) [Concomitant]
  6. XOPENEX [Concomitant]
  7. SPIRIVA (TIOTRORPIUM BROMIDE) [Concomitant]
  8. CALCIUM (CALCIUM NOS) [Concomitant]
  9. FLOVENT [Concomitant]
  10. HUMIRA [Concomitant]
  11. PREDNISONE [Concomitant]
  12. THEOPHYLLINE [Concomitant]
  13. XOPENEX [Concomitant]
  14. LORAZEPAM [Concomitant]

REACTIONS (1)
  - ARTHRALGIA [None]
